FAERS Safety Report 7654438 (Version 5)
Quarter: 2014Q1

REPORT INFORMATION
  Report Type: Spontaneous
  Country: US (occurrence: US)
  Receive Date: 20101103
  Receipt Date: 20140109
  Transmission Date: 20141002
  Serious: Yes (Hospitalization, Other)
  Sender: FDA-Public Use
  Company Number: US-BAYER-201039105NA

PATIENT
  Age: 27 Year
  Sex: Female
  Weight: 63.49 kg

DRUGS (4)
  1. YASMIN [Suspect]
     Dosage: 1 DF, QD
     Route: 048
     Dates: start: 2001, end: 2008
  2. YAZ [Suspect]
     Dosage: 1 DF, QD
     Route: 048
     Dates: start: 2008
  3. ZANTAC [Concomitant]
     Dosage: 1 DF, BID
     Route: 048
  4. FLUVACCIN [Concomitant]
     Dosage: 0.5 CC
     Route: 030
     Dates: start: 20021022

REACTIONS (5)
  - Cholecystitis chronic [None]
  - Gallbladder non-functioning [None]
  - Gallbladder disorder [None]
  - Cholelithiasis [None]
  - Inappropriate schedule of drug administration [None]
